FAERS Safety Report 7946692-1 (Version None)
Quarter: 2011Q4

REPORT INFORMATION
  Report Type: 
  Country: None (occurrence: None)
  Receive Date: 20111129
  Receipt Date: 20111123
  Transmission Date: 20120403
  Serious: No
  Sender: FDA-Public Use
  Company Number: US-PFIZER INC-2011287670

PATIENT
  Sex: Female
  Weight: 77.098 kg

DRUGS (3)
  1. ATIVAN [Concomitant]
     Indication: ANXIETY
     Dosage: 1 MG, 2X/DAY
  2. PRISTIQ [Suspect]
     Indication: DEPRESSION
     Dosage: 100 MG, DAILY
     Dates: start: 20110101
  3. VIVACTIL [Suspect]
     Indication: DEPRESSION
     Dosage: 20 MG, 2X/DAY
     Dates: start: 20110101, end: 20110101

REACTIONS (5)
  - DISTURBANCE IN ATTENTION [None]
  - DRUG INEFFECTIVE [None]
  - ASTHENIA [None]
  - FEELING ABNORMAL [None]
  - STRESS [None]
